FAERS Safety Report 6695990-0 (Version None)
Quarter: 2010Q2

REPORT INFORMATION
  Report Type: 
  Country: None (occurrence: None)
  Receive Date: 20100426
  Receipt Date: 20100412
  Transmission Date: 20101027
  Serious: Yes (Other)
  Sender: FDA-Public Use
  Company Number: US-ASTRAZENECA-2006UW13930

PATIENT
  Age: 19472 Day
  Sex: Male
  Weight: 86.2 kg

DRUGS (20)
  1. SEROQUEL [Suspect]
     Indication: SCHIZOPHRENIA
     Route: 048
     Dates: start: 20020101, end: 20040101
  2. SEROQUEL [Suspect]
     Dosage: 200 MG TAKE 1 OR 2 TS ORAL QHS
     Route: 048
     Dates: start: 20021118
  3. SEROQUEL [Suspect]
     Dosage: 600 MG HS, DECRESED TO 450 MG HS, 150 MG PRN
     Route: 048
     Dates: start: 20030108, end: 20030805
  4. ZOCOR [Concomitant]
     Dates: start: 20061107
  5. BENADRYL [Concomitant]
  6. TOPROL-XL [Concomitant]
     Route: 048
  7. TOPROL-XL [Concomitant]
     Dates: start: 20061107
  8. ABILIFY [Concomitant]
     Dates: start: 20030101
  9. TRIFLUOPERAZINE HCL [Concomitant]
     Dates: start: 20061107
  10. HALDOL [Concomitant]
     Dates: start: 19860101
  11. NAVANE [Concomitant]
  12. STELAZINE [Concomitant]
  13. LIBRIUM [Concomitant]
     Dates: start: 19840101
  14. ZYPREXA [Concomitant]
     Dosage: 5MG - 15MG
     Dates: start: 20000628, end: 20040101
  15. GLIPIZIDE [Concomitant]
     Dates: start: 20061107
  16. POTASSIUM [Concomitant]
     Dates: start: 20061107
  17. TRIAMTERENE [Concomitant]
     Dates: start: 20061107
  18. NAPROSYN [Concomitant]
     Dates: start: 20061107
  19. ZANTAC [Concomitant]
     Dates: start: 20061107
  20. WELLBUTRIN SR [Concomitant]
     Dates: start: 20030108, end: 20030805

REACTIONS (9)
  - CHOLECYSTITIS CHRONIC [None]
  - CHOLELITHIASIS [None]
  - DIABETES MELLITUS [None]
  - DYSPNOEA [None]
  - FALL [None]
  - HALLUCINATION [None]
  - INSOMNIA [None]
  - PANCREATITIS ACUTE [None]
  - TYPE 2 DIABETES MELLITUS [None]
